FAERS Safety Report 7416882-5 (Version None)
Quarter: 2011Q2

REPORT INFORMATION
  Report Type: 
  Country: None (occurrence: None)
  Receive Date: 20110407
  Receipt Date: 20110328
  Transmission Date: 20111010
  Serious: Yes (Death)
  Sender: FDA-Public Use
  Company Number: 2011S1000117

PATIENT
  Sex: Male

DRUGS (6)
  1. MIDAZOLAM [Concomitant]
  2. NITRIC OXIDE [Suspect]
     Indication: RESPIRATORY FAILURE
     Dosage: CONT;INH
     Route: 055
  3. NITRIC OXIDE [Suspect]
     Indication: PULMONARY HYPERTENSION
     Dosage: CONT;INH
     Route: 055
  4. UNASYN [Concomitant]
  5. AMIKACIN [Concomitant]
  6. MUSCULAX [Concomitant]

REACTIONS (4)
  - CARDIAC ARREST [None]
  - BLOOD PRESSURE DECREASED [None]
  - NO THERAPEUTIC RESPONSE [None]
  - BRADYCARDIA [None]
